FAERS Safety Report 12450892 (Version 1)
Quarter: 2016Q2

REPORT INFORMATION
  Report Type: Spontaneous
  Country: US (occurrence: None)
  Receive Date: 20160608
  Receipt Date: 20160608
  Transmission Date: 20160815
  Serious: Yes (Disabling)
  Sender: FDA-Public Use
  Company Number: None

PATIENT
  Age: 57 Year
  Sex: Female
  Weight: 99.79 kg

DRUGS (31)
  1. CHROMIUM PICCOLINATE [Concomitant]
  2. BUPROPION. [Concomitant]
     Active Substance: BUPROPION
  3. MONTELEUKAST [Concomitant]
  4. QVAR [Concomitant]
     Active Substance: BECLOMETHASONE DIPROPIONATE
  5. TOPIRIMATE [Concomitant]
  6. BUTALBITAL [Concomitant]
     Active Substance: BUTALBITAL
  7. FLAXSEED [Concomitant]
     Active Substance: FLAX SEED
  8. KLONOPIN [Concomitant]
     Active Substance: CLONAZEPAM
  9. ALBUTEROL. [Concomitant]
     Active Substance: ALBUTEROL
  10. ZOLPJDEM TARTRATE [Concomitant]
  11. NEXIUM [Concomitant]
     Active Substance: ESOMEPRAZOLE MAGNESIUM
  12. XIFAXAN [Suspect]
     Active Substance: RIFAXIMIN
     Indication: IRRITABLE BOWEL SYNDROME
     Route: 048
     Dates: start: 20160204, end: 20160218
  13. COLESTIPOL [Concomitant]
     Active Substance: COLESTIPOL
  14. CARTIA XT [Concomitant]
     Active Substance: DILTIAZEM HYDROCHLORIDE
  15. CALCIUM-MAGNESIUM-ZINC [Concomitant]
  16. TRAMADOL. [Concomitant]
     Active Substance: TRAMADOL
  17. GLYCOPYRROLATE. [Concomitant]
     Active Substance: GLYCOPYRROLATE
  18. PROCHLOPERAZINE [Concomitant]
  19. DICYCLAMINE [Concomitant]
  20. COQ10 [Concomitant]
     Active Substance: UBIDECARENONE
  21. MILK THISTLE [Concomitant]
     Active Substance: MILK THISTLE
  22. VIT. D3 [Concomitant]
  23. CRANBERRY. [Concomitant]
     Active Substance: CRANBERRY
  24. VEGETARIAN GLUCOSAMINE [Concomitant]
  25. GABAPENTIN. [Concomitant]
     Active Substance: GABAPENTIN
  26. PLACQUINIL [Concomitant]
  27. IB-GARD [Concomitant]
  28. ZINC [Concomitant]
     Active Substance: ZINC\ZINC CHLORIDE
  29. PEPCID [Concomitant]
     Active Substance: FAMOTIDINE
  30. SELENIUM [Concomitant]
     Active Substance: SELENIUM
  31. MULTI FOR HER 50+ [Concomitant]

REACTIONS (5)
  - Pathogen resistance [None]
  - Immune system disorder [None]
  - Hypersomnia [None]
  - Upper respiratory tract infection [None]
  - Urinary tract infection [None]

NARRATIVE: CASE EVENT DATE: 20160218
